FAERS Safety Report 14335487 (Version 1)
Quarter: 2017Q4

REPORT INFORMATION
  Report Type: Report from Study
  Country: US (occurrence: US)
  Receive Date: 20171229
  Receipt Date: 20171229
  Transmission Date: 20180321
  Serious: Yes (Hospitalization)
  Sender: FDA-Public Use
  Company Number: US-ROCHE-1870527

PATIENT
  Age: 25 Year
  Sex: Male

DRUGS (25)
  1. DOCUSATE SODIUM. [Concomitant]
     Active Substance: DOCUSATE SODIUM
     Dosage: PRN (AS NEEDED)
     Route: 048
     Dates: start: 20160718
  2. SENNOSIDE [Concomitant]
     Active Substance: SENNOSIDES
     Dosage: PRN (AS NEEDED)
     Route: 048
     Dates: start: 20160718
  3. MORPHINE [Concomitant]
     Active Substance: MORPHINE
     Route: 065
     Dates: start: 20161124
  4. ROBAXIN [Concomitant]
     Active Substance: METHOCARBAMOL
  5. DECADRON [Concomitant]
     Active Substance: DEXAMETHASONE
     Dosage: START DATE: 20/OCT/2016
     Route: 048
  6. MORPHINE [Concomitant]
     Active Substance: MORPHINE
     Dosage: FREQUENCY: SD
     Route: 042
     Dates: start: 20161018
  7. TRAZODONE HYDROCHLORIDE. [Concomitant]
     Active Substance: TRAZODONE HYDROCHLORIDE
     Dosage: FREQUENCY: HS (AT BEDTIME)
     Route: 048
     Dates: start: 20160913
  8. TRAZODONE HYDROCHLORIDE. [Concomitant]
     Active Substance: TRAZODONE HYDROCHLORIDE
     Dosage: 75-100 MG
     Route: 048
     Dates: start: 20161024, end: 20161030
  9. DECADRON [Concomitant]
     Active Substance: DEXAMETHASONE
     Dosage: END DATE: 20/OCT/2016
     Route: 042
     Dates: start: 20161019
  10. DEXTROSE. [Concomitant]
     Active Substance: DEXTROSE
     Dosage: FREQUENCY: QH (EVERY HOUR)
     Route: 042
     Dates: start: 20161018, end: 20161019
  11. POLYETHYLENE GLYCOL [Concomitant]
     Active Substance: POLYETHYLENE GLYCOLS
     Indication: CONSTIPATION
     Dosage: FREQUENCY: QH (EVERY HOUR)?END DATE: 20/OCT/2016
     Route: 048
     Dates: start: 20161018
  12. PANTOPRAZOLE [Concomitant]
     Active Substance: PANTOPRAZOLE
     Route: 042
     Dates: start: 20161026, end: 20161027
  13. OXYCODONE [Concomitant]
     Active Substance: OXYCODONE
     Route: 048
     Dates: start: 20161025
  14. NORCO [Concomitant]
     Active Substance: ACETAMINOPHEN\HYDROCODONE BITARTRATE
  15. MORPHINE [Concomitant]
     Active Substance: MORPHINE
     Dosage: FREQUENCY: SD?END DATE: 20/OCT/2016
     Route: 042
     Dates: start: 20161019
  16. ZOFRAN [Concomitant]
     Active Substance: ONDANSETRON HYDROCHLORIDE
     Dosage: FREQUENCY: SD
     Route: 042
     Dates: start: 20161018
  17. PANTOPRAZOLE [Concomitant]
     Active Substance: PANTOPRAZOLE
     Route: 048
     Dates: start: 20161019
  18. DECADRON [Concomitant]
     Active Substance: DEXAMETHASONE
     Route: 042
     Dates: start: 20161019
  19. POLYETHYLENE GLYCOL [Concomitant]
     Active Substance: POLYETHYLENE GLYCOLS
     Route: 048
     Dates: start: 20161025
  20. DECADRON [Concomitant]
     Active Substance: DEXAMETHASONE
     Dosage: FREQUENCY: SD
     Route: 042
     Dates: start: 20161018
  21. ATEZOLIZUMAB. [Suspect]
     Active Substance: ATEZOLIZUMAB
     Indication: SYNOVIAL SARCOMA
     Route: 042
     Dates: start: 20161005
  22. GABAPENTIN. [Concomitant]
     Active Substance: GABAPENTIN
     Dosage: FREQUENCY: HS (AT BEDTIME)
     Route: 048
     Dates: start: 20160913
  23. NORMAL SALINE [Concomitant]
     Active Substance: SODIUM CHLORIDE
     Dosage: FREQUENCY: SD
     Route: 042
     Dates: start: 20161018
  24. MAGNESIUM HYDROXIDE. [Concomitant]
     Active Substance: MAGNESIUM HYDROXIDE
     Dosage: PRN (AS NEEDED)
     Route: 048
     Dates: start: 20161019
  25. ATEZOLIZUMAB. [Suspect]
     Active Substance: ATEZOLIZUMAB
     Indication: NEOPLASM MALIGNANT

REACTIONS (8)
  - Hypoaesthesia [Recovered/Resolved]
  - Hyperglycaemia [Unknown]
  - Chest pain [Recovered/Resolved]
  - Pyrexia [Recovered/Resolved]
  - Urinary retention [Unknown]
  - Paraesthesia [Not Recovered/Not Resolved]
  - Spinal cord compression [Recovered/Resolved with Sequelae]
  - Constipation [Unknown]

NARRATIVE: CASE EVENT DATE: 20161012
